FAERS Safety Report 20411064 (Version 1)
Quarter: 2022Q1

REPORT INFORMATION
  Report Type: Spontaneous
  Country: US (occurrence: None)
  Receive Date: 20220131
  Receipt Date: 20220131
  Transmission Date: 20220424
  Serious: No
  Sender: FDA-Public Use
  Company Number: None

PATIENT
  Age: 53 Year
  Sex: Male

DRUGS (1)
  1. EPTIFIBATIDE [Suspect]
     Active Substance: EPTIFIBATIDE
     Indication: Coronary arterial stent insertion
     Dates: start: 20210727, end: 20210727

REACTIONS (7)
  - Acute respiratory failure [None]
  - Pulmonary haemorrhage [None]
  - Platelet count decreased [None]
  - Oedema [None]
  - Pericarditis [None]
  - Pneumonia [None]
  - Bacterial infection [None]

NARRATIVE: CASE EVENT DATE: 20210727
